FAERS Safety Report 8962219 (Version 1)
Quarter: 2012Q4

REPORT INFORMATION
  Report Type: 
  Country: US (occurrence: US)
  Receive Date: 20121212
  Receipt Date: 20121212
  Transmission Date: 20130627
  Serious: Yes (Hospitalization)
  Sender: FDA-Public Use
  Company Number: US-PFIZER INC-2006044029

PATIENT
  Age: 57 Year
  Sex: Female
  Weight: 121 kg

DRUGS (3)
  1. MOTRIN IB [Suspect]
     Indication: ARTHRITIC PAINS
     Dosage: 400 mg, UNK
     Route: 048
  2. TYLENOL EXTRA STRENGTH [Interacting]
     Indication: ARTHRITIC PAINS
     Dosage: 1000 mg, every 4-6 hrs as needed
     Route: 048
     Dates: end: 20060313
  3. BENADRYL [Interacting]
     Indication: SLEEP DISORDER
     Dosage: AT NIGHT AS NEEDED FOR SEVERAL YEARS
     Route: 048

REACTIONS (6)
  - Hypersensitivity [Recovered/Resolved]
  - Drug interaction [Unknown]
  - Abdominal pain [Not Recovered/Not Resolved]
  - Abdominal pain upper [Not Recovered/Not Resolved]
  - Diarrhoea [Recovered/Resolved]
  - Pollakiuria [Recovered/Resolved]
